FAERS Safety Report 9862224 (Version 1)
Quarter: 2014Q1

REPORT INFORMATION
  Report Type: Spontaneous
  Country: US (occurrence: US)
  Receive Date: 20140203
  Receipt Date: 20140203
  Transmission Date: 20141002
  Serious: Yes (Other)
  Sender: FDA-Public Use
  Company Number: US-BAYER-2014-017043

PATIENT
  Age: 24 Year
  Sex: Female
  Weight: 97.51 kg

DRUGS (8)
  1. YAZ [Suspect]
  2. YASMIN [Suspect]
  3. HYDROCODONE/ACETAMINOPHEN [Concomitant]
     Indication: PAIN
     Dosage: 10/325, 4 TIMES A DAY WHEN NEEDED
     Route: 048
  4. PROMETHAZINE [Concomitant]
     Indication: NAUSEA
     Dosage: 25 MG, Q4HR AS NEEDED
     Route: 048
  5. NAPROXEN [Concomitant]
     Indication: PAIN
     Dosage: 25 MG, BID WITH FOOD AS NEEDED
     Route: 048
  6. ALPRAZOLAM [Concomitant]
     Indication: ANXIETY
     Dosage: 0.5 MG, TAKE ? TO 1 TABLET WHEN NEEDED
     Route: 048
  7. ABILIFY [Concomitant]
     Dosage: 5 MG, TAKE ? TABLET DAILY INCREASE BY ? TABLET
     Route: 048
  8. CEFTRIAXONE [Concomitant]

REACTIONS (1)
  - Deep vein thrombosis [None]
